FAERS Safety Report 25178316 (Version 1)
Quarter: 2025Q2

REPORT INFORMATION
  Report Type: Spontaneous
  Country: US (occurrence: US)
  Receive Date: 20250409
  Receipt Date: 20250409
  Transmission Date: 20250716
  Serious: No
  Sender: PFIZER
  Company Number: US-PFIZER INC-202500072085

PATIENT
  Age: 75 Year
  Sex: Male
  Weight: 110.68 kg

DRUGS (2)
  1. VYNDAQEL [Suspect]
     Active Substance: TAFAMIDIS MEGLUMINE
     Indication: Cardiac amyloidosis
     Dosage: 20MG CAPSULES, 4 CAPSULES ONCE A DAY
     Dates: start: 20250321
  2. VYNDAQEL [Suspect]
     Active Substance: TAFAMIDIS MEGLUMINE
     Dosage: 2 CAPSULES AT BEGINNING OF DAY AND 2 CAPSULES AT NIGHT

REACTIONS (2)
  - Diarrhoea [Unknown]
  - Intentional product misuse [Unknown]
